FAERS Safety Report 4277798-9 (Version None)
Quarter: 2004Q1

REPORT INFORMATION
  Report Type: 
  Country: None (occurrence: None)
  Receive Date: 20040121
  Receipt Date: 20040112
  Transmission Date: 20041129
  Serious: Yes (Hospitalization)
  Sender: FDA-Public Use
  Company Number: STA-AE-03-MTX-219

PATIENT
  Age: 88 Year
  Sex: Female

DRUGS (4)
  1. METHOTREXATE [Suspect]
     Indication: RHEUMATOID ARTHRITIS
     Dosage: 5 MG 1X PER 1 WEEK, UNK
     Route: 065
  2. LOXOPROFEN [Concomitant]
  3. SALAZOSULFAPYRIDINE (SULFASALAZINE) [Concomitant]
  4. PREDNISOLONE [Concomitant]

REACTIONS (2)
  - DYSPNOEA [None]
  - LEGIONELLA INFECTION [None]
